FAERS Safety Report 5929635-1 (Version None)
Quarter: 2008Q4

REPORT INFORMATION
  Report Type: 
  Country: None (occurrence: None)
  Receive Date: 20081024
  Receipt Date: 20081017
  Transmission Date: 20090506
  Serious: Yes (Death)
  Sender: FDA-Public Use
  Company Number: IN-GENENTECH-270182

PATIENT
  Sex: Male
  Weight: 55 kg

DRUGS (2)
  1. ACTIVASE [Suspect]
     Indication: ISCHAEMIC STROKE
     Dosage: 50 MG, UNK
     Route: 042
     Dates: start: 20080918, end: 20080918
  2. LOW MOLECULAR WEIGHT HEPARIN [Concomitant]
     Indication: DRUG USE FOR UNKNOWN INDICATION
     Dosage: UNK
     Route: 042
     Dates: start: 20080919

REACTIONS (1)
  - DEATH [None]
